FAERS Safety Report 15969548 (Version 2)
Quarter: 2019Q1

REPORT INFORMATION
  Report Type: Spontaneous
  Country: BR (occurrence: BR)
  Receive Date: 20190215
  Receipt Date: 20190305
  Transmission Date: 20190418
  Serious: No
  Sender: FDA-Public Use
  Company Number: BR-ASTRAZENECA-2019SE24998

PATIENT
  Age: 55 Year
  Sex: Female

DRUGS (1)
  1. LYNPARZA [Suspect]
     Active Substance: OLAPARIB
     Indication: OVARIAN CANCER
     Route: 048
     Dates: start: 20190120

REACTIONS (6)
  - Vomiting [Not Recovered/Not Resolved]
  - Immune system disorder [Recovering/Resolving]
  - Ear discomfort [Recovered/Resolved]
  - Product taste abnormal [Not Recovered/Not Resolved]
  - Influenza [Recovering/Resolving]
  - Product use complaint [Not Recovered/Not Resolved]

NARRATIVE: CASE EVENT DATE: 2019
